FAERS Safety Report 15524413 (Version 7)
Quarter: 2022Q3

REPORT INFORMATION
  Report Type: Spontaneous
  Country: CA (occurrence: CA)
  Receive Date: 20181019
  Receipt Date: 20220706
  Transmission Date: 20221027
  Serious: Yes (Other)
  Sender: FDA-Public Use
  Company Number: CA-PFIZER INC-2017447535

PATIENT
  Sex: Male

DRUGS (26)
  1. ENBREL [Suspect]
     Active Substance: ETANERCEPT
     Indication: Rheumatoid arthritis
     Dosage: 25 MG, 2X/WEEK
     Route: 058
     Dates: start: 2008, end: 2009
  2. ENBREL [Suspect]
     Active Substance: ETANERCEPT
     Dosage: 25 MG, CYCLIC
     Route: 058
  3. ENBREL [Suspect]
     Active Substance: ETANERCEPT
     Dosage: 2 DF, WEEKLY
     Route: 058
  4. ENBREL [Suspect]
     Active Substance: ETANERCEPT
     Dosage: 25 MG, 1X/DAY
     Route: 058
  5. METHOTREXATE SODIUM [Suspect]
     Active Substance: METHOTREXATE SODIUM
     Indication: Rheumatoid arthritis
     Dosage: 25 MG, QWK
     Route: 058
     Dates: end: 201709
  6. METHOTREXATE SODIUM [Suspect]
     Active Substance: METHOTREXATE SODIUM
     Dosage: 25 MG, WEEKLY
     Route: 058
  7. SULFASALAZINE [Suspect]
     Active Substance: SULFASALAZINE
     Dosage: UNK
  8. ORENCIA [Suspect]
     Active Substance: ABATACEPT
     Dosage: UNK
     Dates: start: 2010, end: 2013
  9. AZATHIOPRINE [Suspect]
     Active Substance: AZATHIOPRINE
     Dosage: UNK
  10. AZATHIOPRINE [Suspect]
     Active Substance: AZATHIOPRINE
     Dosage: UNK
     Route: 065
  11. GOLD SODIUM THIOMALATE [Suspect]
     Active Substance: GOLD SODIUM THIOMALATE
     Dosage: UNK
  12. IMURAN [Suspect]
     Active Substance: AZATHIOPRINE
     Dosage: UNK
  13. GOLD [Suspect]
     Active Substance: GOLD
     Dosage: UNK
  14. PLAQUENIL [Suspect]
     Active Substance: HYDROXYCHLOROQUINE SULFATE
     Dosage: 200 MG, 2X/DAY
     Dates: start: 2006, end: 2007
  15. HYDROXYCHLOROQUINE SULFATE [Suspect]
     Active Substance: HYDROXYCHLOROQUINE SULFATE
     Dosage: 200 MG, 2X/DAY (Q12H)
  16. HYDROXYCHLOROQUINE SULFATE [Suspect]
     Active Substance: HYDROXYCHLOROQUINE SULFATE
     Dosage: 400 MG, 1X/DAY
  17. HYDROXYCHLOROQUINE SULFATE [Suspect]
     Active Substance: HYDROXYCHLOROQUINE SULFATE
     Dosage: 2 DF, 1X/DAY
  18. LEFLUNOMIDE [Suspect]
     Active Substance: LEFLUNOMIDE
     Dosage: 20 MG, 1X/DAY
     Route: 048
     Dates: start: 2007, end: 2007
  19. LEFLUNOMIDE [Suspect]
     Active Substance: LEFLUNOMIDE
     Dosage: 1 DF, 1X/DAY
     Route: 048
  20. ARAVA [Suspect]
     Active Substance: LEFLUNOMIDE
     Dosage: UNK
  21. ACTEMRA [Suspect]
     Active Substance: TOCILIZUMAB
     Dosage: UNK
  22. TIAPROFENIC ACID [Concomitant]
     Active Substance: TIAPROFENIC ACID
     Dosage: 300 MG, 1X/DAY
  23. TIAPROFENIC ACID [Concomitant]
     Active Substance: TIAPROFENIC ACID
     Dosage: UNK
  24. ASPIRIN [Concomitant]
     Active Substance: ASPIRIN
     Indication: Myocardial infarction
     Dosage: 81 MG, 1X/DAY
  25. ASPIRIN [Concomitant]
     Active Substance: ASPIRIN
     Dosage: UNK
  26. ASPIRIN [Concomitant]
     Active Substance: ASPIRIN
     Indication: Myocardial infarction
     Dosage: 81 MG, 1X/DAY

REACTIONS (15)
  - Drug ineffective [Recovered/Resolved]
  - Rheumatoid arthritis [Recovered/Resolved]
  - Gait inability [Recovered/Resolved]
  - Therapeutic product effect decreased [Recovered/Resolved]
  - Liver disorder [Recovered/Resolved]
  - Insomnia [Recovered/Resolved]
  - Hand deformity [Recovered/Resolved]
  - Limb discomfort [Recovered/Resolved]
  - Musculoskeletal discomfort [Recovered/Resolved]
  - Pain in extremity [Recovered/Resolved]
  - Back pain [Recovered/Resolved]
  - Localised infection [Recovered/Resolved]
  - Arthropathy [Recovered/Resolved]
  - Contraindicated product administered [Recovered/Resolved]
  - Off label use [Recovered/Resolved]
